FAERS Safety Report 17102206 (Version 1)
Quarter: 2019Q4

REPORT INFORMATION
  Report Type: Spontaneous
  Country: US (occurrence: US)
  Receive Date: 20191106
  Receipt Date: 20191106
  Transmission Date: 20200122
  Serious: Yes (Hospitalization)
  Sender: FDA-Public Use
  Company Number: None

PATIENT
  Age: 67 Year
  Sex: Female

DRUGS (1)
  1. AMBRISENTAN 10MG ACTAVIS PHARMA [Suspect]
     Active Substance: AMBRISENTAN
     Indication: PULMONARY ARTERIAL HYPERTENSION
     Route: 048
     Dates: start: 20190725

REACTIONS (5)
  - Oedema peripheral [None]
  - Gait disturbance [None]
  - Asthenia [None]
  - Pneumonia [None]
  - Fluid overload [None]

NARRATIVE: CASE EVENT DATE: 20191021
